FAERS Safety Report 9419416 (Version 1)
Quarter: 2013Q3

REPORT INFORMATION
  Report Type: Spontaneous
  Country: US (occurrence: None)
  Receive Date: 20130724
  Receipt Date: 20130724
  Transmission Date: 20140515
  Serious: Yes (Other)
  Sender: FDA-Public Use
  Company Number: None

PATIENT
  Age: 35 Year
  Sex: Male

DRUGS (2)
  1. BACTRIM [Suspect]
     Indication: DRUG-INDUCED LIVER INJURY
     Dates: start: 20051007, end: 20051017
  2. CEFAZOLIN [Suspect]
     Dates: start: 20051007, end: 20051007

REACTIONS (3)
  - Jaundice [None]
  - Urethral stenosis [None]
  - Hepatitis cholestatic [None]
